FAERS Safety Report 18851569 (Version 1)
Quarter: 2021Q1

REPORT INFORMATION
  Report Type: Spontaneous
  Country: US (occurrence: US)
  Receive Date: 20210204
  Receipt Date: 20210204
  Transmission Date: 20210420
  Serious: No
  Sender: FDA-Public Use
  Company Number: None

PATIENT
  Age: 90 Year
  Sex: Male
  Weight: 61 kg

DRUGS (1)
  1. BAMLANIVIMAB (EUA) (BAMLANIVIMAB) (EUA) [Suspect]
     Active Substance: BAMLANIVIMAB\ETESEVIMAB
     Indication: SARS-COV-2 TEST POSITIVE
     Route: 042
     Dates: start: 20210202, end: 20210202

REACTIONS (4)
  - Electrocardiogram QT prolonged [None]
  - Infusion related reaction [None]
  - Arrhythmia [None]
  - Extrasystoles [None]

NARRATIVE: CASE EVENT DATE: 20210202
